FAERS Safety Report 16176596 (Version 2)
Quarter: 2019Q2

REPORT INFORMATION
  Report Type: Report from Study
  Country: US (occurrence: US)
  Receive Date: 20190409
  Receipt Date: 20190417
  Transmission Date: 20190711
  Serious: Yes (Hospitalization, Other)
  Sender: FDA-Public Use
  Company Number: US-GILEAD-2019-0400631

PATIENT
  Age: 67 Year
  Sex: Male
  Weight: 80.2 kg

DRUGS (47)
  1. METFORMIN [Concomitant]
     Active Substance: METFORMIN HYDROCHLORIDE
     Dosage: 500,MG,TWICE DAILY
     Route: 048
     Dates: start: 20131007, end: 20190324
  2. DIPHENHYDRAMINE. [Concomitant]
     Active Substance: DIPHENHYDRAMINE
     Dosage: 25,MG,DAILY
     Route: 041
     Dates: start: 20190325, end: 20190325
  3. DOCUSATE [Concomitant]
     Active Substance: DOCUSATE
     Dosage: 200,MG,DAILY
     Route: 048
     Dates: start: 20190407, end: 20190407
  4. MAGNESIUM SULFATE. [Concomitant]
     Active Substance: MAGNESIUM SULFATE
     Dosage: 2,G,DAILY
     Route: 041
     Dates: start: 20190331, end: 20190331
  5. OMEPRAZOLE. [Concomitant]
     Active Substance: OMEPRAZOLE
     Dosage: 20,MG,DAILY
     Route: 048
     Dates: start: 20170101, end: 20190324
  6. SODIUM CHLORIDE 0.9% [Concomitant]
     Active Substance: SODIUM CHLORIDE
     Dosage: 2000,ML,DAILY
     Route: 041
     Dates: start: 20190320, end: 20190322
  7. SODIUM CHLORIDE 0.9% [Concomitant]
     Active Substance: SODIUM CHLORIDE
     Dosage: 50,OTHER,OTHER
     Route: 041
     Dates: start: 20190401, end: 20190407
  8. ACETAMINOPHEN. [Concomitant]
     Active Substance: ACETAMINOPHEN
     Dosage: 650,MG,DAILY
     Route: 048
     Dates: start: 20190330, end: 20190402
  9. SENNA [SENNOSIDE A+B] [Concomitant]
     Dosage: 1,OTHER,DAILY
     Route: 048
     Dates: start: 20190328, end: 20190330
  10. CYCLOPHOSPHAMIDE. [Suspect]
     Active Substance: CYCLOPHOSPHAMIDE
     Indication: BONE MARROW CONDITIONING REGIMEN
     Dosage: 1040 QD
     Route: 042
     Dates: start: 20190320, end: 20190322
  11. NAPROXEN. [Concomitant]
     Active Substance: NAPROXEN
     Dosage: 500,MG,AS NECESSARY
     Route: 048
     Dates: start: 20120101, end: 20190324
  12. CYCLOBENZAPRINE. [Concomitant]
     Active Substance: CYCLOBENZAPRINE
     Dosage: 5,MG,THREE TIMES DAILY
     Route: 048
     Dates: start: 20150101, end: 20190324
  13. OMEPRAZOLE. [Concomitant]
     Active Substance: OMEPRAZOLE
     Dosage: 20,MG,DAILY
     Route: 048
     Dates: start: 20170101, end: 20190324
  14. SODIUM CHLORIDE 0.9% [Concomitant]
     Active Substance: SODIUM CHLORIDE
     Dosage: 10,OTHER,OTHER
     Route: 041
     Dates: start: 20190325, end: 20190326
  15. CITRATE DEXTROSE [Concomitant]
     Dosage: 1070,ML,OTHER
     Route: 050
     Dates: start: 20190305, end: 20190305
  16. PHYTONADIONE. [Concomitant]
     Active Substance: PHYTONADIONE
     Dosage: 10,MG,DAILY
     Route: 048
     Dates: start: 20190331, end: 20190331
  17. MELATONIN [Concomitant]
     Active Substance: MELATONIN
     Dosage: 5,MG,DAILY
     Route: 048
     Dates: start: 20190325, end: 20190402
  18. ACETAMINOPHEN. [Concomitant]
     Active Substance: ACETAMINOPHEN
     Dosage: 650,MG,DAILY
     Route: 048
     Dates: start: 20190325, end: 20190325
  19. MEROPENEM. [Concomitant]
     Active Substance: MEROPENEM
     Dosage: 2,G,THREE TIMES DAILY
     Route: 041
     Dates: start: 20190330, end: 20190403
  20. FLUDARABINE [Suspect]
     Active Substance: FLUDARABINE PHOSPHATE
     Indication: BONE MARROW CONDITIONING REGIMEN
     Dosage: 62.5 QD
     Route: 042
     Dates: start: 20190320, end: 20190322
  21. CALCIUM GLUCONATE. [Concomitant]
     Active Substance: CALCIUM GLUCONATE
     Dosage: 1,G,OTHER
     Route: 041
     Dates: start: 20190305, end: 20190305
  22. ONDANSETRON [Concomitant]
     Active Substance: ONDANSETRON
     Dosage: 8,MG,AS NECESSARY
     Route: 041
     Dates: start: 20190401, end: 20190401
  23. ALLOPURINOL. [Concomitant]
     Active Substance: ALLOPURINOL
     Dosage: 300,MG,DAILY
     Route: 048
     Dates: start: 20190404, end: 20190406
  24. PEG 3350 + ELECTROLYTES [Concomitant]
     Dosage: 2120,ML,DAILY
     Route: 048
     Dates: start: 20190331, end: 20190331
  25. MESNA. [Suspect]
     Active Substance: MESNA
     Indication: PROPHYLAXIS
     Dosage: 1030, QD
     Route: 042
     Dates: start: 20190320, end: 20190322
  26. SODIUM CHLORIDE 0.9% [Concomitant]
     Active Substance: SODIUM CHLORIDE
     Dosage: 1000,ML,OTHER
     Route: 041
     Dates: start: 20190305, end: 20190305
  27. SODIUM CHLORIDE 0.9% [Concomitant]
     Active Substance: SODIUM CHLORIDE
     Dosage: 50,OTHER,DAILY
     Route: 041
     Dates: start: 20190402, end: 20190407
  28. CALCIUM GLUCONATE. [Concomitant]
     Active Substance: CALCIUM GLUCONATE
     Dosage: 1,G,OTHER
     Route: 041
     Dates: start: 20190305, end: 20190305
  29. HEPARIN [Concomitant]
     Active Substance: HEPARIN SODIUM
     Dosage: 3800,IU,OTHER
     Route: 050
     Dates: start: 20190305, end: 20190305
  30. PANTOPRAZOLE [Concomitant]
     Active Substance: PANTOPRAZOLE
     Dosage: 40,MG,DAILY
     Route: 048
     Dates: start: 20190325, end: 20190408
  31. LACTULOSE. [Concomitant]
     Active Substance: LACTULOSE
     Dosage: 20,G,DAILY
     Route: 048
     Dates: start: 20190328, end: 20190328
  32. SENNA [SENNOSIDE A+B] [Concomitant]
     Dosage: 2,OTHER,DAILY
     Route: 048
     Dates: start: 20190331, end: 20190331
  33. DOCUSATE [Concomitant]
     Active Substance: DOCUSATE
     Dosage: 100,MG,TWICE DAILY
     Route: 048
     Dates: start: 20190328, end: 20190401
  34. ATORVASTATIN [Concomitant]
     Active Substance: ATORVASTATIN
     Dosage: 40,MG,DAILY
     Route: 048
     Dates: start: 20120101
  35. CHOLECALCIFEROL [Concomitant]
     Active Substance: CHOLECALCIFEROL
     Dosage: 1000,IU,DAILY
     Route: 048
     Dates: start: 20150101, end: 20190402
  36. SODIUM CHLORIDE 0.9% [Concomitant]
     Active Substance: SODIUM CHLORIDE
     Dosage: 750,ML,DAILY
     Route: 041
     Dates: start: 20190326, end: 20190326
  37. ONDANSETRON [Concomitant]
     Active Substance: ONDANSETRON
     Dosage: 16,MG,DAILY
     Route: 041
     Dates: start: 20190320, end: 20190322
  38. BISACODYL. [Concomitant]
     Active Substance: BISACODYL
     Dosage: 10,MG,DAILY
     Route: 048
     Dates: start: 20190330, end: 20190331
  39. AXICABTAGENE CILOLEUCEL [Suspect]
     Active Substance: AXICABTAGENE CILOLEUCEL
     Indication: B-CELL LYMPHOMA
     Dosage: 2.0 X 10E6 CELLS/KG
     Route: 042
     Dates: start: 20190325, end: 20190325
  40. SODIUM CHLORIDE 0.9% [Concomitant]
     Active Substance: SODIUM CHLORIDE
     Dosage: 10,OTHER,OTHER
     Route: 041
     Dates: start: 20190329, end: 20190329
  41. PHYTONADIONE. [Concomitant]
     Active Substance: PHYTONADIONE
     Dosage: 10,MG,DAILY
     Route: 048
     Dates: start: 20190324, end: 20190324
  42. LACTULOSE. [Concomitant]
     Active Substance: LACTULOSE
     Dosage: 20,G,THREE TIMES DAILY
     Route: 048
     Dates: start: 20190329, end: 20190329
  43. POLYETHYLENE GLYCOL [Concomitant]
     Active Substance: POLYETHYLENE GLYCOLS
     Dosage: 17,G,DAILY
     Route: 048
     Dates: start: 20190330, end: 20190401
  44. TOCILIZUMAB. [Concomitant]
     Active Substance: TOCILIZUMAB
  45. SODIUM CHLORIDE 0.9% [Concomitant]
     Active Substance: SODIUM CHLORIDE
     Dosage: 250,ML,DAILY
     Route: 041
     Dates: start: 20190325, end: 20190325
  46. SODIUM CHLORIDE 0.9% [Concomitant]
     Active Substance: SODIUM CHLORIDE
     Dosage: 500,ML,DAILY
     Route: 041
     Dates: start: 20190402, end: 20190402
  47. MAGNESIUM CITRATE. [Concomitant]
     Active Substance: MAGNESIUM CITRATE
     Dosage: 148,ML,DAILY
     Route: 041
     Dates: start: 20190330, end: 20190330

REACTIONS (5)
  - Aphasia [Recovered/Resolved]
  - Gait disturbance [Recovered/Resolved]
  - Muscular weakness [Recovered/Resolved]
  - Tremor [Recovered/Resolved]
  - CAR T-cell-related encephalopathy syndrome [Recovered/Resolved]

NARRATIVE: CASE EVENT DATE: 20190402
